FAERS Safety Report 7317990-X (Version None)
Quarter: 2011Q1

REPORT INFORMATION
  Report Type: 
  Country: None (occurrence: None)
  Receive Date: 20110227
  Receipt Date: 20110201
  Transmission Date: 20110831
  Serious: No
  Sender: FDA-Public Use
  Company Number: US-B.I. PHARMACEUTICALS,INC./RIDGEFIELD-2011-BP-03460BP

PATIENT
  Sex: Female

DRUGS (8)
  1. PLAVIX [Concomitant]
     Indication: STENT PLACEMENT
     Dosage: 75 MG
  2. TRIAMTERENE AND HYDROCHLOROTHIAZIDE [Concomitant]
     Indication: SWELLING
  3. LISINOPRIL [Concomitant]
     Indication: HYPERTENSION
     Dosage: 40 MG
  4. PEPCID [Concomitant]
     Indication: ABDOMINAL DISCOMFORT
  5. PRADAXA [Suspect]
     Indication: ATRIAL FIBRILLATION
     Dosage: 300 MG
     Route: 048
     Dates: start: 20110130
  6. ASA [Concomitant]
     Indication: PROPHYLAXIS
     Dosage: 325 MG
  7. DILTIAZEM CD [Concomitant]
     Indication: ATRIAL FIBRILLATION
     Dosage: 240 MG
  8. TRILIPIX [Concomitant]
     Indication: BLOOD CHOLESTEROL INCREASED
     Dosage: 135 MG

REACTIONS (3)
  - CHEST DISCOMFORT [None]
  - CONSTIPATION [None]
  - COUGH [None]
